FAERS Safety Report 13081281 (Version 5)
Quarter: 2018Q4

REPORT INFORMATION
  Report Type: Report from Study
  Country: None (occurrence: BR)
  Receive Date: 20170103
  Receipt Date: 20181102
  Transmission Date: 20190204
  Serious: Yes (Hospitalization, Other)
  Sender: FDA-Public Use
  Company Number: BR-ABBVIE-16K-020-1824545-00

PATIENT
  Age: 39 Year
  Sex: Male
  Weight: 70 kg

DRUGS (6)
  1. HUMIRA [Suspect]
     Active Substance: ADALIMUMAB
     Route: 058
     Dates: end: 20171229
  2. AZATHIOPRINE. [Concomitant]
     Active Substance: AZATHIOPRINE
     Indication: OSTEOPOROSIS
  3. HUMIRA [Suspect]
     Active Substance: ADALIMUMAB
     Indication: CROHN^S DISEASE
     Dosage: LOADING DOSE
     Route: 058
     Dates: start: 20161206, end: 20161206
  4. AZATHIOPRINE. [Concomitant]
     Active Substance: AZATHIOPRINE
     Indication: CROHN^S DISEASE
  5. HUMIRA [Suspect]
     Active Substance: ADALIMUMAB
     Dosage: WEEK 1
     Route: 058
     Dates: start: 20161221, end: 20161221
  6. AZATHIOPRINE. [Concomitant]
     Active Substance: AZATHIOPRINE
     Indication: IMMUNODEFICIENCY
     Route: 048
     Dates: start: 2005

REACTIONS (28)
  - Hernia [Recovering/Resolving]
  - Insomnia [Recovering/Resolving]
  - Intra-abdominal fluid collection [Recovered/Resolved]
  - Hepatitis [Not Recovered/Not Resolved]
  - Lung infection [Recovering/Resolving]
  - Weight decreased [Recovered/Resolved]
  - Gastrointestinal inflammation [Recovering/Resolving]
  - Intra-abdominal fluid collection [Unknown]
  - Ascites [Unknown]
  - Pneumonia [Recovering/Resolving]
  - Pain [Unknown]
  - Painful respiration [Not Recovered/Not Resolved]
  - Gastrointestinal bacterial overgrowth [Unknown]
  - Lung disorder [Recovering/Resolving]
  - Abdominal pain [Recovering/Resolving]
  - Enterovesical fistula [Recovered/Resolved]
  - Suture rupture [Unknown]
  - Pulmonary embolism [Recovering/Resolving]
  - Appendicitis [Unknown]
  - Malaise [Recovering/Resolving]
  - Liver disorder [Not Recovered/Not Resolved]
  - Emphysema [Recovering/Resolving]
  - Drug dependence [Unknown]
  - Dyspepsia [Recovering/Resolving]
  - Purulent discharge [Unknown]
  - Pleural effusion [Recovering/Resolving]
  - Post procedural complication [Unknown]
  - Ureteric dilatation [Unknown]

NARRATIVE: CASE EVENT DATE: 201612
